FAERS Safety Report 13787539 (Version 2)
Quarter: 2017Q4

REPORT INFORMATION
  Report Type: Spontaneous
  Country: US (occurrence: US)
  Receive Date: 20170725
  Receipt Date: 20171010
  Transmission Date: 20180320
  Serious: No
  Sender: FDA-Public Use
  Company Number: US-JNJFOC-20170623549

PATIENT
  Age: 4 Month
  Sex: Female
  Weight: 4.54 kg

DRUGS (1)
  1. INFANTS TYLENOL [Suspect]
     Active Substance: ACETAMINOPHEN
     Indication: PYREXIA
     Route: 048
     Dates: start: 20170621, end: 20170622

REACTIONS (5)
  - Retching [Recovered/Resolved]
  - Wrong technique in product usage process [Recovered/Resolved]
  - Infantile spitting up [Recovered/Resolved]
  - Drug administration error [Recovered/Resolved]
  - Syringe issue [Unknown]

NARRATIVE: CASE EVENT DATE: 20170621
